FAERS Safety Report 6484357-6 (Version None)
Quarter: 2009Q4

REPORT INFORMATION
  Report Type: 
  Country: None (occurrence: None)
  Receive Date: 20091209
  Receipt Date: 20091201
  Transmission Date: 20100525
  Serious: Yes (Death, Hospitalization)
  Sender: FDA-Public Use
  Company Number: US-GILEAD-2009-0024876

PATIENT
  Sex: Female

DRUGS (7)
  1. LETAIRIS [Suspect]
     Indication: PULMONARY ARTERIAL HYPERTENSION
     Route: 048
     Dates: start: 20090909, end: 20090917
  2. SILDENAFIL [Concomitant]
  3. LASIX [Concomitant]
  4. METOLAZONE [Concomitant]
  5. DIOVAN [Concomitant]
  6. NEXIUM [Concomitant]
  7. AMBIEN [Concomitant]

REACTIONS (4)
  - CARDIAC DISORDER [None]
  - CARDIO-RESPIRATORY ARREST [None]
  - FLUID OVERLOAD [None]
  - SEPSIS [None]
